FAERS Safety Report 8853785 (Version 1)
Quarter: 2012Q4

REPORT INFORMATION
  Report Type: 
  Country: IE (occurrence: IE)
  Receive Date: 20121023
  Receipt Date: 20121023
  Transmission Date: 20130627
  Serious: Yes (Life-Threatening, Hospitalization, Other)
  Sender: FDA-Public Use
  Company Number: IE-ELI_LILLY_AND_COMPANY-IE201210004696

PATIENT
  Age: 40 Year
  Sex: Female

DRUGS (13)
  1. ZYPREXA [Suspect]
     Indication: DEPRESSION
     Dosage: 20 mg, qd
     Route: 048
     Dates: start: 201006, end: 20110222
  2. VALDOXAN [Concomitant]
     Indication: DEPRESSION
     Dosage: 25 mg, qd
     Route: 048
     Dates: start: 201008, end: 20110222
  3. VALDOXAN [Concomitant]
     Dosage: 50 mg, qd
     Dates: start: 201010, end: 20110222
  4. FLUOXETINE [Concomitant]
     Indication: DEPRESSION
     Dosage: 20 mg, bid
     Route: 048
     Dates: start: 201002, end: 20110222
  5. MIRTAZAPINE [Concomitant]
     Indication: DEPRESSION
     Dosage: 30 mg, qd
     Route: 048
     Dates: start: 201008
  6. MIRTAZAPINE [Concomitant]
     Dosage: 15 mg, qd
     Route: 048
     Dates: end: 20110222
  7. PANTOPRAZOLE [Concomitant]
     Dosage: 40 mg, qd
  8. CLONAZEPAM [Concomitant]
     Dosage: 1 mg, UNK
  9. CLONAZEPAM [Concomitant]
     Dosage: 2 mg, qd
     Route: 048
  10. ALPRAZOLAM [Concomitant]
     Dosage: 0.5 mg, UNK
  11. ZOPICLONE [Concomitant]
     Dosage: 7.5 mg, qd
  12. DOMPERIDONE [Concomitant]
  13. PARACETAMOL [Concomitant]
     Dosage: 1000 mg, qd

REACTIONS (7)
  - Hepatic failure [Recovered/Resolved]
  - Ischaemic hepatitis [Recovered/Resolved]
  - Hypertension [Recovered/Resolved]
  - Hepatomegaly [Recovered/Resolved]
  - Pallor [Recovered/Resolved]
  - Vomiting [Recovered/Resolved]
  - International normalised ratio increased [Recovered/Resolved]
